FAERS Safety Report 15524136 (Version 3)
Quarter: 2019Q2

REPORT INFORMATION
  Report Type: Report from Study
  Country: US (occurrence: US)
  Receive Date: 20181019
  Receipt Date: 20190530
  Transmission Date: 20190711
  Serious: No
  Sender: FDA-Public Use
  Company Number: PHEH2018US043620

PATIENT
  Sex: Female

DRUGS (1)
  1. GILENYA [Suspect]
     Active Substance: FINGOLIMOD HYDROCHLORIDE
     Indication: MULTIPLE SCLEROSIS
     Dosage: 0.5 MG, QD
     Route: 048
     Dates: start: 201712

REACTIONS (8)
  - Anxiety [Unknown]
  - Depressed mood [Unknown]
  - Apathy [Unknown]
  - Bladder pain [Unknown]
  - Back pain [Unknown]
  - Myalgia [Unknown]
  - Decreased interest [Unknown]
  - Vitamin D decreased [Unknown]
